FAERS Safety Report 12060163 (Version 1)
Quarter: 2016Q1

REPORT INFORMATION
  Report Type: Report from Study
  Country: AU (occurrence: AU)
  Receive Date: 20160210
  Receipt Date: 20160210
  Transmission Date: 20160526
  Serious: Yes (Other)
  Sender: FDA-Public Use
  Company Number: AU-IPSEN BIOPHARMACEUTICALS, INC.-2015-09056

PATIENT
  Sex: Male

DRUGS (4)
  1. SOMATULINE AUTOGEL [Suspect]
     Active Substance: LANREOTIDE ACETATE
     Indication: METASTATIC CARCINOID TUMOUR
     Dosage: 60 MG
     Route: 058
     Dates: start: 2013, end: 2016
  2. COVERSYL [Concomitant]
     Active Substance: PERINDOPRIL
     Dosage: 5MG/1.25MG
     Route: 048
  3. SOMATULINE AUTOGEL [Suspect]
     Active Substance: LANREOTIDE ACETATE
     Dosage: 90 MG
     Route: 058
     Dates: start: 2016
  4. ANTI-EMETICS (NOS) [Concomitant]
     Indication: NAUSEA
     Dosage: NOT REPORTED
     Route: 065

REACTIONS (8)
  - Hyperhidrosis [Unknown]
  - Body temperature increased [Unknown]
  - Headache [Unknown]
  - Neoplasm [Unknown]
  - Nausea [Unknown]
  - Pain [Unknown]
  - Fatigue [Unknown]
  - Ill-defined disorder [Unknown]
